FAERS Safety Report 7464655-X (Version None)
Quarter: 2011Q2

REPORT INFORMATION
  Report Type: 
  Country: None (occurrence: None)
  Receive Date: 20110428
  Receipt Date: 20110421
  Transmission Date: 20111010
  Serious: Yes (Other)
  Sender: FDA-Public Use
  Company Number: DSA_45117_2011

PATIENT
  Sex: Female

DRUGS (2)
  1. XENAZINE [Suspect]
     Indication: HUNTINGTON'S DISEASE
     Dosage: 50 MG DAILY, ORAL; 12.5 MG BID, ORAL
     Route: 048
     Dates: start: 20110201
  2. XENAZINE [Suspect]
     Indication: HUNTINGTON'S DISEASE
     Dosage: 50 MG DAILY, ORAL; 12.5 MG BID, ORAL
     Route: 048
     Dates: start: 20101009, end: 20110201

REACTIONS (5)
  - WEIGHT DECREASED [None]
  - MEMORY IMPAIRMENT [None]
  - DYSARTHRIA [None]
  - FALL [None]
  - DECREASED APPETITE [None]
